FAERS Safety Report 6712736-8 (Version None)
Quarter: 2010Q2

REPORT INFORMATION
  Report Type: 
  Country: None (occurrence: None)
  Receive Date: 20100505
  Receipt Date: 20100505
  Transmission Date: 20101027
  Serious: Yes (Other)
  Sender: FDA-Public Use
  Company Number: None

PATIENT
  Age: 76 Year
  Sex: Female
  Weight: 52.6173 kg

DRUGS (1)
  1. TOVIAZ [Suspect]
     Indication: URINARY INCONTINENCE
     Dosage: 1 TABLET ONCE A DAY
     Dates: start: 20100429, end: 20100503

REACTIONS (3)
  - DISCOMFORT [None]
  - PRODUCT PACKAGING ISSUE [None]
  - REACTION TO DRUG EXCIPIENTS [None]
